FAERS Safety Report 8945382 (Version 2)
Quarter: 2013Q1

REPORT INFORMATION
  Report Type: Spontaneous
  Country: US (occurrence: US)
  Receive Date: 20121205
  Receipt Date: 20130329
  Transmission Date: 20140127
  Serious: No
  Sender: FDA-Public Use
  Company Number: US-009507513-1212USA000193

PATIENT
  Sex: Female
  Weight: 58.5 kg

DRUGS (1)
  1. ASMANEX TWISTHALER [Suspect]
     Dosage: 220 MICROGRAM, 2 PUFFS IN THE MORNING
     Route: 055
     Dates: start: 20120929, end: 20121123

REACTIONS (3)
  - Drug dose omission [Unknown]
  - Product quality issue [Unknown]
  - No adverse event [Unknown]
